FAERS Safety Report 14839304 (Version 3)
Quarter: 2018Q2

REPORT INFORMATION
  Report Type: Spontaneous
  Country: US (occurrence: US)
  Receive Date: 20180502
  Receipt Date: 20180511
  Transmission Date: 20180711
  Serious: No
  Sender: FDA-Public Use
  Company Number: US-GLAXOSMITHKLINE-US2018075795

PATIENT
  Age: 48 Year
  Sex: Female

DRUGS (9)
  1. LYRICA [Concomitant]
     Active Substance: PREGABALIN
  2. CLARITIN [Concomitant]
     Active Substance: LORATADINE
  3. FOLIC ACID. [Concomitant]
     Active Substance: FOLIC ACID
  4. REQUIP XL [Suspect]
     Active Substance: ROPINIROLE HYDROCHLORIDE
     Indication: RESTLESS LEGS SYNDROME
     Dosage: 4 MG, QD
     Route: 048
     Dates: start: 2017
  5. AMOXICILLIN. [Concomitant]
     Active Substance: AMOXICILLIN
  6. CITALOPRAM [Concomitant]
     Active Substance: CITALOPRAM HYDROBROMIDE
  7. BACLOFEN. [Concomitant]
     Active Substance: BACLOFEN
  8. METHOTREXATE. [Concomitant]
     Active Substance: METHOTREXATE
  9. DEXILANT [Concomitant]
     Active Substance: DEXLANSOPRAZOLE

REACTIONS (7)
  - Nasopharyngitis [Recovering/Resolving]
  - Blister rupture [Unknown]
  - Multiple allergies [Recovering/Resolving]
  - Burns second degree [Not Recovered/Not Resolved]
  - Thermal burn [Not Recovered/Not Resolved]
  - Drug effect incomplete [Unknown]
  - Malaise [Recovering/Resolving]

NARRATIVE: CASE EVENT DATE: 201804
